FAERS Safety Report 20674335 (Version 1)
Quarter: 2022Q2

REPORT INFORMATION
  Report Type: Spontaneous
  Country: IN (occurrence: IN)
  Receive Date: 20220405
  Receipt Date: 20220405
  Transmission Date: 20220721
  Serious: Yes (Death, Congenital Anomaly, Other)
  Sender: FDA-Public Use
  Company Number: IN-MACLEODS PHARMACEUTICALS US LTD-MAC2022035075

PATIENT

DRUGS (4)
  1. OLANZAPINE [Suspect]
     Active Substance: OLANZAPINE
     Indication: Product used for unknown indication
     Dosage: 5 MILLIGRAM, QD (AT NIGHT)
     Route: 065
  2. OLANZAPINE [Suspect]
     Active Substance: OLANZAPINE
     Dosage: 10 MILLIGRAM
     Route: 065
  3. QUETIAPINE [Suspect]
     Active Substance: QUETIAPINE
     Indication: Product used for unknown indication
     Dosage: 200 MILLIGRAM, QD (AT NIGHT)
     Route: 065
  4. SERTRALINE [Suspect]
     Active Substance: SERTRALINE HYDROCHLORIDE
     Indication: Product used for unknown indication
     Dosage: 150 MILLIGRAM, QD
     Route: 065

REACTIONS (17)
  - Death [Fatal]
  - Talipes [Unknown]
  - Micrognathia [Unknown]
  - Limb deformity [Unknown]
  - Neck deformity [Unknown]
  - Single umbilical artery [Unknown]
  - Polyhydramnios [Unknown]
  - Congenital choroid plexus cyst [Unknown]
  - Oedema neonatal [Unknown]
  - Aplasia [Unknown]
  - Wrist deformity [Unknown]
  - Subgaleal haemorrhage [Unknown]
  - Cyanosis [Unknown]
  - Crying [Unknown]
  - Areflexia [Unknown]
  - Hypokinesia neonatal [Unknown]
  - Foetal exposure during pregnancy [Unknown]
